FAERS Safety Report 12519102 (Version 1)
Quarter: 2016Q2

REPORT INFORMATION
  Report Type: Report from Study
  Country: US (occurrence: US)
  Receive Date: 20160630
  Receipt Date: 20160630
  Transmission Date: 20160815
  Serious: Yes (Death)
  Sender: FDA-Public Use
  Company Number: US-ACTELION-A-US2016-138179

PATIENT
  Age: 93 Year
  Sex: Female

DRUGS (12)
  1. CIPRO [Concomitant]
     Active Substance: CIPROFLOXACIN HYDROCHLORIDE
  2. VERAMYST [Concomitant]
     Active Substance: FLUTICASONE FUROATE
  3. MIRTAZAPINE. [Concomitant]
     Active Substance: MIRTAZAPINE
  4. LASIX [Concomitant]
     Active Substance: FUROSEMIDE
  5. COUMADIN [Concomitant]
     Active Substance: WARFARIN SODIUM
  6. POTASSIUM [Concomitant]
     Active Substance: POTASSIUM
  7. TRACLEER [Suspect]
     Active Substance: BOSENTAN
     Indication: PULMONARY ARTERIAL HYPERTENSION
     Dosage: 125 MG, BID
     Route: 048
  8. MELATONIN [Concomitant]
     Active Substance: MELATONIN
  9. REVATIO [Concomitant]
     Active Substance: SILDENAFIL CITRATE
  10. METAMUCIL [Concomitant]
     Active Substance: PLANTAGO SEED
  11. ATORVASTATIN [Concomitant]
     Active Substance: ATORVASTATIN
  12. ACETAMINOPHEN. [Concomitant]
     Active Substance: ACETAMINOPHEN

REACTIONS (1)
  - Death [Fatal]

NARRATIVE: CASE EVENT DATE: 20160611
